FAERS Safety Report 22181103 (Version 1)
Quarter: 2023Q2

REPORT INFORMATION
  Report Type: Spontaneous
  Country: US (occurrence: US)
  Receive Date: 20230406
  Receipt Date: 20230406
  Transmission Date: 20230721
  Serious: Yes (Death, Other)
  Sender: FDA-Public Use
  Company Number: US-drreddys-LIT/USA/23/0163205

PATIENT
  Age: 78 Year
  Sex: Male

DRUGS (6)
  1. DOBUTAMINE HYDROCHLORIDE [Suspect]
     Active Substance: DOBUTAMINE HYDROCHLORIDE
     Indication: Hypotension
     Route: 042
  2. AMLODIPINE MALEATE [Suspect]
     Active Substance: AMLODIPINE MALEATE
     Indication: Product used for unknown indication
  3. PHENYLEPHRINE HYDROCHLORIDE [Suspect]
     Active Substance: PHENYLEPHRINE HYDROCHLORIDE
     Indication: Hypotension
  4. ENZALUTAMIDE [Suspect]
     Active Substance: ENZALUTAMIDE
     Indication: Product used for unknown indication
  5. DENOSUMAB [Suspect]
     Active Substance: DENOSUMAB
     Indication: Osteoporosis prophylaxis
  6. NOREPINEPHRINE [Suspect]
     Active Substance: NOREPINEPHRINE
     Indication: Product used for unknown indication

REACTIONS (6)
  - Cardiogenic shock [Fatal]
  - Shock [Fatal]
  - Hypocalcaemia [Fatal]
  - Drug ineffective [Fatal]
  - Vitamin D deficiency [Unknown]
  - Leukocytosis [Unknown]
